FAERS Safety Report 19723209 (Version 1)
Quarter: 2021Q3

REPORT INFORMATION
  Report Type: Report from Study
  Country: US (occurrence: US)
  Receive Date: 20210819
  Receipt Date: 20210819
  Transmission Date: 20211014
  Serious: Yes (Hospitalization)
  Sender: FDA-Public Use
  Company Number: US-BIOVITRUM-2021US7492

PATIENT
  Sex: Female

DRUGS (1)
  1. KINERET [Suspect]
     Active Substance: ANAKINRA
     Indication: PRODUCT USED FOR UNKNOWN INDICATION
     Route: 058
     Dates: start: 20200228

REACTIONS (5)
  - Rash [Recovering/Resolving]
  - Product dose omission issue [Unknown]
  - Inflammation [Unknown]
  - Localised infection [Recovering/Resolving]
  - Red blood cell sedimentation rate increased [Unknown]
